FAERS Safety Report 7525832-2 (Version None)
Quarter: 2011Q2

REPORT INFORMATION
  Report Type: 
  Country: None (occurrence: None)
  Receive Date: 20110603
  Receipt Date: 20110603
  Transmission Date: 20111010
  Serious: Yes (Other)
  Sender: FDA-Public Use
  Company Number: None

PATIENT
  Age: 15 Year
  Sex: Female
  Weight: 33.6 kg

DRUGS (1)
  1. DEPAKOTE [Suspect]
     Dosage: 3 PO BID
     Route: 048
     Dates: start: 20070625, end: 20090311

REACTIONS (2)
  - PRODUCT SUBSTITUTION ISSUE [None]
  - CONVULSION [None]
